FAERS Safety Report 6063571-8 (Version None)
Quarter: 2009Q1

REPORT INFORMATION
  Report Type: 
  Country: None (occurrence: None)
  Receive Date: 20090129
  Receipt Date: 20090112
  Transmission Date: 20090719
  Serious: Yes (Hospitalization)
  Sender: FDA-Public Use
  Company Number: WAES0901USA02392

PATIENT
  Age: 70 Year
  Sex: Male

DRUGS (6)
  1. INDOMETHACIN [Suspect]
     Indication: PAIN
  2. SIMVASTATIN [Concomitant]
  3. DIGOXIN [Concomitant]
  4. METOPROLOL TARTRATE [Concomitant]
  5. AMITRIPTYLINE HYDROCHLORIDE [Concomitant]
  6. ASPIRIN [Concomitant]

REACTIONS (10)
  - ACUTE PRERENAL FAILURE [None]
  - ANAEMIA [None]
  - BLOOD CREATINE INCREASED [None]
  - BLOOD GLUCOSE INCREASED [None]
  - BLOOD UREA INCREASED [None]
  - DIZZINESS [None]
  - EROSIVE OESOPHAGITIS [None]
  - GASTRIC ULCER [None]
  - GASTROINTESTINAL HAEMORRHAGE [None]
  - NAUSEA [None]
